FAERS Safety Report 9625768 (Version 1)
Quarter: 2013Q4

REPORT INFORMATION
  Report Type: Spontaneous
  Country: IR (occurrence: IR)
  Receive Date: 20131016
  Receipt Date: 20131016
  Transmission Date: 20140711
  Serious: Yes (Hospitalization)
  Sender: FDA-Public Use
  Company Number: PHHY2013IR114081

PATIENT
  Age: 43 Year
  Sex: Female

DRUGS (2)
  1. MYCOPHENOLATE MOFETIL [Suspect]
     Dosage: 1 G, BID
  2. CICLOSPORIN [Suspect]
     Dosage: 50 MG, BID

REACTIONS (7)
  - Immune reconstitution inflammatory syndrome [Recovering/Resolving]
  - Cytomegalovirus infection [Recovering/Resolving]
  - Pyrexia [Recovered/Resolved]
  - Malaise [Recovering/Resolving]
  - Cough [Recovering/Resolving]
  - Tuberculosis [Recovering/Resolving]
  - Lung consolidation [Recovering/Resolving]
